FAERS Safety Report 5467648-7 (Version None)
Quarter: 2007Q3

REPORT INFORMATION
  Report Type: 
  Country: None (occurrence: None)
  Receive Date: 20070917
  Receipt Date: 20070904
  Transmission Date: 20080115
  Serious: Yes (Hospitalization)
  Sender: FDA-Public Use
  Company Number: 200712192

PATIENT
  Age: 20 Year
  Sex: Female
  Weight: 83.9154 kg

DRUGS (6)
  1. CARIMUNE [Suspect]
     Indication: CHRONIC SINUSITIS
     Dosage: 30 G DAILY IV
     Route: 042
     Dates: start: 20070825, end: 20070825
  2. CARIMUNE [Suspect]
     Indication: HYPOGAMMAGLOBULINAEMIA
     Dosage: 30 G DAILY IV
     Route: 042
     Dates: start: 20070825, end: 20070825
  3. CITALOPRAM HYDROBROMIDE [Concomitant]
  4. SEROQUEL [Concomitant]
  5. FAMOTIDINE [Concomitant]
  6. LEVORA 0.15/30-28 [Concomitant]

REACTIONS (7)
  - APHASIA [None]
  - ASTHENIA [None]
  - EYE ROLLING [None]
  - HEADACHE [None]
  - HYPOKINESIA [None]
  - HYPOTENSION [None]
  - PARAESTHESIA [None]
